FAERS Safety Report 16880627 (Version 1)
Quarter: 2019Q4

REPORT INFORMATION
  Report Type: Spontaneous
  Country: RO (occurrence: RO)
  Receive Date: 20191003
  Receipt Date: 20191003
  Transmission Date: 20200122
  Serious: Yes (Hospitalization, Other)
  Sender: FDA-Public Use
  Company Number: RO-PFIZER INC-2019398518

PATIENT
  Age: 66 Year
  Sex: Female

DRUGS (4)
  1. PERINDOPRIL [Suspect]
     Active Substance: PERINDOPRIL
     Indication: HYPERTENSION
     Dosage: UNK
  2. BISOPROLOL [Suspect]
     Active Substance: BISOPROLOL
     Indication: HYPERTENSION
     Dosage: UNK
  3. AMLODIPINE BESILATE [Suspect]
     Active Substance: AMLODIPINE BESYLATE
     Indication: HYPERTENSION
     Dosage: UNK
  4. FUROSEMIDE. [Suspect]
     Active Substance: FUROSEMIDE
     Indication: HYPERTENSION
     Dosage: UNK

REACTIONS (12)
  - Malignant hypertension [Recovered/Resolved]
  - Confusional state [Recovered/Resolved]
  - Headache [Recovered/Resolved]
  - Blood pressure inadequately controlled [Recovered/Resolved]
  - Hypertension [Recovered/Resolved]
  - Cardiac failure [Recovered/Resolved]
  - Eye haemorrhage [Recovered/Resolved]
  - Hallucination [Recovered/Resolved]
  - Dyspnoea exertional [Recovered/Resolved]
  - Drug ineffective [Unknown]
  - Papilloedema [Recovered/Resolved]
  - Vertigo [Recovered/Resolved]
